FAERS Safety Report 5888380-1 (Version None)
Quarter: 2008Q3

REPORT INFORMATION
  Report Type: 
  Country: None (occurrence: None)
  Receive Date: 20080916
  Receipt Date: 20080916
  Transmission Date: 20090109
  Serious: No
  Sender: FDA-Public Use
  Company Number: None

PATIENT
  Age: 55 Year
  Sex: Female
  Weight: 97.977 kg

DRUGS (1)
  1. BYETTA [Suspect]
     Indication: TYPE 2 DIABETES MELLITUS
     Dosage: INJECT 10 MCG TWICE DAILY SQ
     Route: 058
     Dates: start: 20061018, end: 20080209

REACTIONS (2)
  - PANCREATITIS ACUTE [None]
  - PANCREATITIS CHRONIC [None]
